FAERS Safety Report 8554599-4 (Version None)
Quarter: 2012Q3

REPORT INFORMATION
  Report Type: 
  Country: None (occurrence: None)
  Receive Date: 20120731
  Receipt Date: 20120717
  Transmission Date: 20120928
  Serious: No
  Sender: FDA-Public Use
  Company Number: US-JNJFOC-20120506930

PATIENT
  Age: 49 Year
  Sex: Female
  Weight: 90.72 kg

DRUGS (6)
  1. COLACE [Concomitant]
     Route: 065
  2. DIAZEPAM [Concomitant]
     Route: 065
  3. GABAPENTIN [Concomitant]
     Route: 065
  4. MOBIC [Concomitant]
     Route: 065
  5. INVEGA SUSTENNA [Suspect]
     Indication: SCHIZOAFFECTIVE DISORDER
     Route: 030
  6. CELEXA [Concomitant]
     Route: 065

REACTIONS (1)
  - INJECTION SITE MASS [None]
